FAERS Safety Report 4898308-9 (Version None)
Quarter: 2006Q1

REPORT INFORMATION
  Report Type: 
  Country: None (occurrence: None)
  Receive Date: 20060127
  Receipt Date: 20060121
  Transmission Date: 20060701
  Serious: Yes (Other)
  Sender: FDA-Public Use
  Company Number: 2006010163

PATIENT
  Age: 8 Year
  Sex: Female
  Weight: 27.6694 kg

DRUGS (2)
  1. BENADRYL ALLERGY + COLD W/PE (DIPHENHYDRAMINE, PHENYLEPHRINE, ACETAMIN [Suspect]
     Indication: SINUS CONGESTION
     Dosage: 1 CAPLET 3X A DAY, ORAL
     Route: 048
     Dates: start: 20060116, end: 20060121
  2. SALBUTAMOL (SALBUTAMOL) [Concomitant]

REACTIONS (1)
  - RASH [None]
